FAERS Safety Report 13424425 (Version 2)
Quarter: 2017Q2

REPORT INFORMATION
  Report Type: Report from Study
  Country: JP (occurrence: JP)
  Receive Date: 20170410
  Receipt Date: 20170503
  Transmission Date: 20170830
  Serious: Yes (Hospitalization)
  Sender: FDA-Public Use
  Company Number: JP-SHIRE-JP201707312

PATIENT
  Age: 59 Year
  Sex: Male

DRUGS (10)
  1. OLMETEC [Concomitant]
     Active Substance: OLMESARTAN MEDOXOMIL
     Indication: HYPERTENSION
     Dosage: 20 MG, UNKNOWN
     Route: 048
     Dates: start: 20130704
  2. CALFINA [Concomitant]
     Active Substance: ALFACALCIDOL
     Indication: HYPERPARATHYROIDISM SECONDARY
     Dosage: 0.5 ?G, UNKNOWN
     Route: 048
     Dates: start: 20120918
  3. PARIET [Concomitant]
     Active Substance: RABEPRAZOLE SODIUM
     Indication: GASTRITIS PROPHYLAXIS
     Dosage: 10 MG, UNKNOWN
     Route: 048
  4. RENAGEL [Concomitant]
     Active Substance: SEVELAMER HYDROCHLORIDE
     Indication: HYPERPHOSPHATAEMIA
     Dosage: 750 MG, UNKNOWN
     Route: 048
     Dates: start: 20121115
  5. 405 (LANTHANUM CARBONATE) [Suspect]
     Active Substance: LANTHANUM CARBONATE
     Indication: PRODUCT USED FOR UNKNOWN INDICATION
     Dosage: 2250 MG, UNKNOWN (/DAY)
     Route: 048
     Dates: start: 20120607
  6. KAYEXALATE [Concomitant]
     Active Substance: SODIUM POLYSTYRENE SULFONATE
     Indication: PROPHYLAXIS
     Dosage: 13.08 G, UNKNOWN
     Route: 048
     Dates: start: 20141009
  7. REGPARA [Concomitant]
     Active Substance: CINACALCET HYDROCHLORIDE
     Indication: HYPERPARATHYROIDISM SECONDARY
     Dosage: 25 MG, UNKNOWN
     Route: 048
     Dates: start: 20130514
  8. SHAKUYAKUKANZOTO [Concomitant]
     Active Substance: HERBALS
     Indication: MUSCLE SPASMS
     Dosage: 5 G, UNKNOWN
     Route: 048
     Dates: start: 20130207
  9. FEXOFENADINE HYDROCHLORIDE. [Concomitant]
     Active Substance: FEXOFENADINE HYDROCHLORIDE
     Indication: PRURITUS
     Dosage: 60 MG, UNKNOWN
     Route: 048
     Dates: start: 20140612
  10. AMLODIPINE [Concomitant]
     Active Substance: AMLODIPINE BESYLATE
     Indication: HYPERTENSION
     Dosage: 10 MG, UNKNOWN
     Route: 048
     Dates: start: 20130108

REACTIONS (1)
  - Shunt stenosis [Recovered/Resolved]

NARRATIVE: CASE EVENT DATE: 20170207
